FAERS Safety Report 25998652 (Version 1)
Quarter: 2025Q4

REPORT INFORMATION
  Report Type: Report from Study
  Country: TH (occurrence: None)
  Receive Date: 20251105
  Receipt Date: 20251105
  Transmission Date: 20260118
  Serious: Yes (Death, Hospitalization)
  Sender: ENCUBE ETHICALS PVT. LTD.
  Company Number: TH-Encube-002565

PATIENT
  Age: 21 Year
  Sex: Female

DRUGS (1)
  1. LIDOCAINE [Suspect]
     Active Substance: LIDOCAINE
     Indication: Product used for unknown indication
     Dosage: LOCAL

REACTIONS (4)
  - Mental status changes [Fatal]
  - Medication error [Fatal]
  - Hypotension [Fatal]
  - Local anaesthetic systemic toxicity [Fatal]
